FAERS Safety Report 10468057 (Version 1)
Quarter: 2014Q3

REPORT INFORMATION
  Report Type: Spontaneous
  Country: FR (occurrence: FR)
  Receive Date: 20140922
  Receipt Date: 20140922
  Transmission Date: 20150326
  Serious: Yes (Hospitalization)
  Sender: FDA-Public Use
  Company Number: FR-PFIZER INC-2014256665

PATIENT
  Age: 57 Year
  Sex: Female

DRUGS (2)
  1. ADVIL [Suspect]
     Active Substance: IBUPROFEN
     Indication: BRONCHITIS
     Dosage: 400 MG, SINGLE
     Route: 048
     Dates: start: 20131212, end: 20131212
  2. AMOXYCILLIN/CLAVULANIC ACID ALMUS [Suspect]
     Active Substance: AMOXICILLIN\CLAVULANIC ACID
     Indication: BRONCHITIS
     Dosage: 1 G, SINGLE
     Route: 048
     Dates: start: 20131212, end: 20131212

REACTIONS (6)
  - Rash erythematous [Recovered/Resolved]
  - Lip oedema [Recovered/Resolved]
  - Hypersensitivity [Not Recovered/Not Resolved]
  - Palatal oedema [Recovered/Resolved]
  - Paraesthesia [Recovered/Resolved]
  - Dyspnoea [Recovered/Resolved]

NARRATIVE: CASE EVENT DATE: 20131212
